FAERS Safety Report 9568183 (Version 1)
Quarter: 2013Q3

REPORT INFORMATION
  Report Type: Spontaneous
  Country: US (occurrence: US)
  Receive Date: 20130930
  Receipt Date: 20130930
  Transmission Date: 20140515
  Serious: Yes (Other)
  Sender: FDA-Public Use
  Company Number: US-AMGEN-USASP2013054395

PATIENT
  Age: 48 Year
  Sex: Female

DRUGS (1)
  1. ENBREL [Suspect]
     Indication: PSORIATIC ARTHROPATHY
     Dosage: 50 MG, QWK
     Route: 065
     Dates: start: 20130512, end: 201307

REACTIONS (4)
  - Pharyngitis streptococcal [Recovered/Resolved]
  - Acne [Recovered/Resolved]
  - Pain [Recovered/Resolved]
  - Erythema [Recovered/Resolved]
